FAERS Safety Report 9513352 (Version 1)
Quarter: 2013Q1

REPORT INFORMATION
  Report Type: Spontaneous
  Country: US (occurrence: None)
  Receive Date: 20130305
  Receipt Date: 20130305
  Transmission Date: 20140127
  Serious: Yes (Other)
  Sender: FDA-Public Use
  Company Number: 163-21880-12102960

PATIENT
  Age: 72 Year
  Sex: Female
  Weight: 65.77 kg

DRUGS (4)
  1. REVLIMID [Suspect]
     Indication: PLASMA CELL MYELOMA
     Dosage: 5 MG, 1 CAP FOR 4 DAYS THEN 2 CAPS FOR 3 DAYS
     Dates: start: 20090904
  2. LYRICA (PREGABALIN) [Concomitant]
  3. ZOMETA (ZOLEDRONIC ACID) [Concomitant]
  4. VELCADE (BORTEZOMIB) [Concomitant]

REACTIONS (2)
  - Musculoskeletal stiffness [None]
  - Nasopharyngitis [None]
